FAERS Safety Report 14686364 (Version 1)
Quarter: 2018Q1

REPORT INFORMATION
  Report Type: Spontaneous
  Country: US (occurrence: US)
  Receive Date: 20180326
  Receipt Date: 20180326
  Transmission Date: 20180509
  Serious: Yes (Hospitalization)
  Sender: FDA-Public Use
  Company Number: None

PATIENT
  Age: 69 Year
  Sex: Male

DRUGS (30)
  1. SPIRIVA [Concomitant]
     Active Substance: TIOTROPIUM BROMIDE MONOHYDRATE
  2. PRAVASTATIN. [Concomitant]
     Active Substance: PRAVASTATIN
  3. ENOXAPARIN [Concomitant]
     Active Substance: ENOXAPARIN
  4. ADCIRCA [Suspect]
     Active Substance: TADALAFIL
     Indication: PULMONARY ARTERIAL HYPERTENSION
     Route: 048
     Dates: start: 20160216
  5. TIMOLOL GEL FORMING SOLUTION [Concomitant]
     Active Substance: TIMOLOL
  6. AZITHROMYCIN ANHYDROUS. [Concomitant]
     Active Substance: AZITHROMYCIN ANHYDROUS
  7. NYSTATIN. [Concomitant]
     Active Substance: NYSTATIN
  8. FLUOXETINE [Concomitant]
     Active Substance: FLUOXETINE HYDROCHLORIDE
  9. BREO ELLIPTA [Concomitant]
     Active Substance: FLUTICASONE FUROATE\VILANTEROL TRIFENATATE
  10. PRAVASTATIN. [Concomitant]
     Active Substance: PRAVASTATIN
  11. ASPIRIN. [Concomitant]
     Active Substance: ASPIRIN
  12. BENAZEPRIL [Concomitant]
     Active Substance: BENAZEPRIL HYDROCHLORIDE
  13. HYDROCO/APAP [Concomitant]
     Active Substance: ACETAMINOPHEN\HYDROCODONE
  14. MONTELUKAST [Concomitant]
     Active Substance: MONTELUKAST SODIUM
  15. GLIMEPIRIDE. [Concomitant]
     Active Substance: GLIMEPIRIDE
  16. PREDNISONE. [Concomitant]
     Active Substance: PREDNISONE
  17. ONDANSETRON [Concomitant]
     Active Substance: ONDANSETRON
  18. PLAVIX [Concomitant]
     Active Substance: CLOPIDOGREL BISULFATE
  19. CINNAMON OIL [Concomitant]
     Active Substance: CINNAMON OIL
  20. ULORIC [Concomitant]
     Active Substance: FEBUXOSTAT
  21. BRIMONIDINE [Concomitant]
     Active Substance: BRIMONIDINE TARTRATE
  22. APAP/CODEINE [Concomitant]
     Active Substance: ACETAMINOPHEN\CODEINE PHOSPHATE
  23. CLOTRIMAZOLE. [Concomitant]
     Active Substance: CLOTRIMAZOLE
  24. GINGKO BILOBA [Concomitant]
     Active Substance: GINKGO
  25. JANUVIA [Concomitant]
     Active Substance: SITAGLIPTIN PHOSPHATE
  26. HUMALOG MIX [Concomitant]
     Active Substance: INSULIN LISPRO
  27. CARVEDILOL. [Concomitant]
     Active Substance: CARVEDILOL
  28. SILDENAFIL. [Concomitant]
     Active Substance: SILDENAFIL
  29. CYCLOBENZAPR [Concomitant]
     Active Substance: CYCLOBENZAPRINE
  30. LEVOFLOXACIN. [Concomitant]
     Active Substance: LEVOFLOXACIN

REACTIONS (1)
  - Fatigue [None]

NARRATIVE: CASE EVENT DATE: 201803
